FAERS Safety Report 16766260 (Version 2)
Quarter: 2019Q3

REPORT INFORMATION
  Report Type: Spontaneous
  Country: US (occurrence: US)
  Receive Date: 20190903
  Receipt Date: 20190919
  Transmission Date: 20191005
  Serious: Yes (Hospitalization, Other)
  Sender: FDA-Public Use
  Company Number: US-PFIZER INC-2019372308

PATIENT
  Age: 72 Year
  Sex: Male
  Weight: 253 kg

DRUGS (1)
  1. CHANTIX [Suspect]
     Active Substance: VARENICLINE TARTRATE
     Indication: SMOKING CESSATION THERAPY
     Dosage: 1 MG, 2X/DAY
     Dates: start: 20190223

REACTIONS (10)
  - Increased appetite [Recovered/Resolved]
  - Anger [Recovered/Resolved]
  - Boredom [Not Recovered/Not Resolved]
  - Pulmonary congestion [Not Recovered/Not Resolved]
  - Nausea [Recovered/Resolved]
  - Abnormal dreams [Recovered/Resolved]
  - Energy increased [Recovered/Resolved]
  - Productive cough [Recovered/Resolved]
  - Chronic obstructive pulmonary disease [Unknown]
  - Dysphonia [Unknown]

NARRATIVE: CASE EVENT DATE: 20190227
